FAERS Safety Report 12839155 (Version 1)
Quarter: 2016Q4

REPORT INFORMATION
  Report Type: Spontaneous
  Country: CH (occurrence: CH)
  Receive Date: 20161012
  Receipt Date: 20161012
  Transmission Date: 20170207
  Serious: Yes (Hospitalization)
  Sender: FDA-Public Use
  Company Number: CH-SA-2016SA184754

PATIENT
  Age: 81 Year
  Sex: Male

DRUGS (10)
  1. TRIATEC [Suspect]
     Active Substance: RAMIPRIL
     Route: 065
  2. HALDOL [Suspect]
     Active Substance: HALOPERIDOL
     Route: 065
  3. PANTOZOL [Suspect]
     Active Substance: PANTOPRAZOLE SODIUM
     Route: 065
  4. ASPIRIN CARDIO [Suspect]
     Active Substance: ASPIRIN
     Route: 065
  5. PLAVIX [Suspect]
     Active Substance: CLOPIDOGREL BISULFATE
     Route: 048
  6. TOREM [Suspect]
     Active Substance: TORSEMIDE
     Route: 048
  7. CIRCADIN [Suspect]
     Active Substance: MELATONIN
     Route: 048
  8. CIPRALEX [Suspect]
     Active Substance: ESCITALOPRAM OXALATE
     Route: 065
  9. TEMESTA [Suspect]
     Active Substance: LORAZEPAM
     Route: 048
  10. HYDROMORPHONE HYDROCHLORIDE. [Suspect]
     Active Substance: HYDROMORPHONE HYDROCHLORIDE
     Indication: ARTHRALGIA
     Route: 065

REACTIONS (2)
  - Syncope [Unknown]
  - Haematoma [Unknown]

NARRATIVE: CASE EVENT DATE: 20160909
